FAERS Safety Report 4485298-6 (Version None)
Quarter: 2004Q3

REPORT INFORMATION
  Report Type: 
  Country: None (occurrence: None)
  Receive Date: 20040921
  Receipt Date: 20040512
  Transmission Date: 20050211
  Serious: Yes (Life-Threatening, Hospitalization)
  Sender: FDA-Public Use
  Company Number: 163-20785-04050311

PATIENT
  Age: 77 Year
  Sex: Male

DRUGS (8)
  1. THALOMID [Suspect]
     Indication: MULTIPLE MYELOMA
     Dosage: 50 MG, DAILY, ORAL; DAILY
     Route: 048
     Dates: start: 19991006, end: 20040101
  2. THALOMID [Suspect]
     Indication: MULTIPLE MYELOMA
     Dosage: 50 MG, DAILY, ORAL; DAILY
     Route: 048
     Dates: start: 20040101
  3. AREDIA [Suspect]
     Indication: MULTIPLE MYELOMA
     Dosage: 90 MG, EVERY 4 TO 5 WEEKS, INTRAVENOUS
     Route: 042
     Dates: start: 19991006, end: 20040101
  4. AREDIA [Suspect]
     Indication: MULTIPLE MYELOMA
     Dosage: 90 MG, EVERY 4 TO 5 WEEKS, INTRAVENOUS
     Route: 042
     Dates: start: 20040101
  5. BETA BLOCKERS (BETA BLOCKING AGENTS) [Concomitant]
  6. COUMADIN [Concomitant]
  7. MULTI VITAMIN (MULTIVITAMINS) [Concomitant]
  8. MAGNESIUM (MAGNESIUM) [Concomitant]

REACTIONS (2)
  - CHEST DISCOMFORT [None]
  - CHEST PAIN [None]
